FAERS Safety Report 16423334 (Version 2)
Quarter: 2019Q2

REPORT INFORMATION
  Report Type: Report from Study
  Country: None (occurrence: HU)
  Receive Date: 20190612
  Receipt Date: 20190618
  Transmission Date: 20190711
  Serious: Yes (Other)
  Sender: FDA-Public Use
  Company Number: HU-ABBVIE-19S-076-2767438-00

PATIENT
  Age: 72 Year
  Sex: Male

DRUGS (5)
  1. NITROMINT [Concomitant]
     Active Substance: NITROGLYCERIN
     Indication: PRODUCT USED FOR UNKNOWN INDICATION
     Dosage: 1-1 TABLET IN THE MORNING AND AT NOON
     Route: 048
  2. SYNCUMAR [Concomitant]
     Active Substance: ACENOCOUMAROL
     Indication: ANTIPLATELET THERAPY
     Dosage: 1 TABLET AT NOON
     Route: 048
  3. VEROSPIRON [Concomitant]
     Active Substance: SPIRONOLACTONE
     Indication: DIURETIC THERAPY
     Dosage: 1 TABLET IN THE MORNING
     Route: 048
  4. DUODOPA [Suspect]
     Active Substance: CARBIDOPA\LEVODOPA
     Indication: PARKINSON^S DISEASE
     Dosage: MORNING DOSE 5.5 ML; CONTINUOUS DOSE 4.2 ML/H;EXTRA DOSE 0.8 ML
     Route: 050
     Dates: start: 20160808
  5. TRAMADOL. [Concomitant]
     Active Substance: TRAMADOL
     Indication: ARTHRALGIA
     Route: 048

REACTIONS (7)
  - Candida test positive [Unknown]
  - Stoma site discharge [Not Recovered/Not Resolved]
  - Pantoea agglomerans test positive [Unknown]
  - Wound complication [Not Recovered/Not Resolved]
  - Streptococcus test positive [Unknown]
  - Stoma site erythema [Not Recovered/Not Resolved]
  - Wound infection bacterial [Unknown]

NARRATIVE: CASE EVENT DATE: 20190412
